FAERS Safety Report 7413002-8 (Version None)
Quarter: 2011Q2

REPORT INFORMATION
  Report Type: 
  Country: None (occurrence: None)
  Receive Date: 20110413
  Receipt Date: 20110404
  Transmission Date: 20111010
  Serious: Yes (Hospitalization)
  Sender: FDA-Public Use
  Company Number: PHHY2011TR28563

PATIENT
  Age: 50 Year
  Sex: Male

DRUGS (1)
  1. PREDNISOLONE [Suspect]
     Indication: PARAPARESIS
     Dosage: 10 MG, UNK

REACTIONS (5)
  - NECROTISING RETINITIS [None]
  - EYE PAIN [None]
  - BLINDNESS [None]
  - VARICELLA VIRUS TEST POSITIVE [None]
  - RETINAL DETACHMENT [None]
